FAERS Safety Report 23201303 (Version 4)
Quarter: 2024Q2

REPORT INFORMATION
  Report Type: Other
  Country: US (occurrence: US)
  Receive Date: 20231118
  Receipt Date: 20240512
  Transmission Date: 20240716
  Serious: No
  Sender: FDA-Public Use
  Company Number: US-TRAVERE-2023TVT00547

PATIENT
  Age: 34 Year
  Sex: Female

DRUGS (2)
  1. FILSPARI [Suspect]
     Active Substance: SPARSENTAN
     Indication: IgA nephropathy
     Dosage: 200 MG
     Route: 048
     Dates: start: 20230904
  2. FILSPARI [Suspect]
     Active Substance: SPARSENTAN
     Indication: Haematuria
     Dosage: EXPIRY DATE: 31-AUG-2025
     Route: 048
     Dates: start: 202308

REACTIONS (5)
  - Eye pain [Unknown]
  - Ear pain [Unknown]
  - Skin exfoliation [Unknown]
  - Arthralgia [Unknown]
  - Back pain [Unknown]
